FAERS Safety Report 8612155-3 (Version None)
Quarter: 2012Q3

REPORT INFORMATION
  Report Type: 
  Country: None (occurrence: None)
  Receive Date: 20120822
  Receipt Date: 20120816
  Transmission Date: 20120928
  Serious: Yes (Hospitalization, Other)
  Sender: FDA-Public Use
  Company Number: DE-ABBOTT-09P-062-0613533-00

PATIENT
  Sex: Female
  Weight: 65 kg

DRUGS (20)
  1. LEFLUNOMIDE [Concomitant]
     Indication: RHEUMATOID ARTHRITIS
     Dosage: ONCE PER DAY
     Route: 048
     Dates: start: 20070201
  2. METHOTREXATE SODIUM [Concomitant]
     Indication: RHEUMATOID ARTHRITIS
     Route: 048
     Dates: start: 19990701, end: 20060101
  3. RAMIPRIL [Concomitant]
     Indication: PRODUCT USED FOR UNKNOWN INDICATION
  4. CLARITHROMYCIN [Concomitant]
     Indication: PRODUCT USED FOR UNKNOWN INDICATION
  5. HUMIRA [Suspect]
     Dates: start: 20090901
  6. PANTOPRAZOLE [Concomitant]
     Indication: PRODUCT USED FOR UNKNOWN INDICATION
  7. CEFPODOXIM 1 A PHARMA [Concomitant]
     Indication: PRODUCT USED FOR UNKNOWN INDICATION
  8. METHYLPREDNISOLONE [Concomitant]
     Indication: RHEUMATOID ARTHRITIS
     Route: 048
  9. ASPIRIN [Concomitant]
     Indication: PRODUCT USED FOR UNKNOWN INDICATION
  10. FERROUS SULFATE TAB [Concomitant]
     Indication: PRODUCT USED FOR UNKNOWN INDICATION
     Dosage: DUODENAL
  11. REMICADE [Concomitant]
     Indication: RHEUMATOID ARTHRITIS
     Dates: start: 20000101, end: 20060101
  12. SIMVASTATIN [Concomitant]
     Indication: PRODUCT USED FOR UNKNOWN INDICATION
  13. METOPROLOL TARTRATE [Concomitant]
     Indication: PRODUCT USED FOR UNKNOWN INDICATION
     Dosage: 1.5 X DAILY
  14. CALCIVIT D3 [Concomitant]
     Indication: PRODUCT USED FOR UNKNOWN INDICATION
  15. HUMIRA [Suspect]
     Indication: RHEUMATOID ARTHRITIS
     Route: 058
     Dates: start: 20080601, end: 20090101
  16. LEF20MG [Concomitant]
     Indication: RHEUMATOID ARTHRITIS
     Dates: start: 20070626
  17. RITUXIMAB [Concomitant]
     Indication: RHEUMATOID ARTHRITIS
     Dates: start: 20070626, end: 20070626
  18. TORSEMIDE [Concomitant]
     Indication: PRODUCT USED FOR UNKNOWN INDICATION
  19. ALLOPURINOL [Concomitant]
     Indication: PRODUCT USED FOR UNKNOWN INDICATION
  20. ALENDRONATE SODIUM [Concomitant]
     Indication: PRODUCT USED FOR UNKNOWN INDICATION

REACTIONS (20)
  - RENAL FAILURE [None]
  - NASOPHARYNGITIS [None]
  - DILATATION VENTRICULAR [None]
  - TRICUSPID VALVE INCOMPETENCE [None]
  - URINARY TRACT INFECTION [None]
  - HEPATIC STEATOSIS [None]
  - ASTHENIA [None]
  - MITRAL VALVE INCOMPETENCE [None]
  - URINARY RETENTION [None]
  - INFLAMMATION [None]
  - AORTIC STENOSIS [None]
  - GENERAL PHYSICAL HEALTH DETERIORATION [None]
  - EJECTION FRACTION ABNORMAL [None]
  - PYREXIA [None]
  - GASTRITIS [None]
  - AORTIC ARTERIOSCLEROSIS [None]
  - NEPHROPATHY TOXIC [None]
  - NORMOCHROMIC NORMOCYTIC ANAEMIA [None]
  - DIASTOLIC DYSFUNCTION [None]
  - CHOLELITHIASIS [None]
